FAERS Safety Report 15562310 (Version 3)
Quarter: 2018Q4

REPORT INFORMATION
  Report Type: Report from Study
  Country: SE (occurrence: SE)
  Receive Date: 20181029
  Receipt Date: 20181113
  Transmission Date: 20190205
  Serious: Yes (Hospitalization)
  Sender: FDA-Public Use
  Company Number: SE-ROCHE-2204546

PATIENT
  Age: 65 Year
  Sex: Female

DRUGS (23)
  1. BETAMETASON [Concomitant]
     Route: 048
     Dates: start: 20181013, end: 20181014
  2. BETAMETASON [Concomitant]
     Route: 048
  3. CARBOPLATIN. [Suspect]
     Active Substance: CARBOPLATIN
     Indication: OVARIAN CANCER
     Dosage: DOSE: 6 MILLIGRAMS PER MILLILITER*MINUTE (MG/ML*MIN)?DATE OF MOST RECENT DOSE OF CARBOPLATIN PRIOR T
     Route: 042
     Dates: start: 20181011
  4. PACLITAXEL. [Suspect]
     Active Substance: PACLITAXEL
     Indication: PERITONEAL NEOPLASM
  5. OMEPRAZOL [Concomitant]
     Active Substance: OMEPRAZOLE
     Indication: GASTROOESOPHAGEAL REFLUX DISEASE
     Route: 042
     Dates: start: 20181106
  6. BETAMETASON [Concomitant]
     Route: 048
  7. PACLITAXEL. [Suspect]
     Active Substance: PACLITAXEL
     Indication: OVARIAN CANCER
     Dosage: DATE OF MOST RECENT DOSE OF PACLITAXEL PRIOR TO SAE: 11/OCT/2018 DOSE 323.75 MG
     Route: 042
     Dates: start: 20181011
  8. ONDANSETRON [Concomitant]
     Active Substance: ONDANSETRON
     Route: 065
     Dates: start: 20181106
  9. BETAMETASON [Concomitant]
     Route: 048
     Dates: start: 20181106, end: 20181106
  10. ATEZOLIZUMAB. [Suspect]
     Active Substance: ATEZOLIZUMAB
     Indication: OVARIAN CANCER
     Dosage: MOST RECENT DOSE OF BLINDED ATEZOLIZUMAB WAS ADMINISTERED ON 11/OCT/2018
     Route: 042
     Dates: start: 20181011
  11. PACLITAXEL. [Suspect]
     Active Substance: PACLITAXEL
     Indication: FALLOPIAN TUBE CANCER
  12. ONDANSETRON [Concomitant]
     Active Substance: ONDANSETRON
     Indication: PREMEDICATION
     Route: 065
     Dates: start: 20181011, end: 20181012
  13. BETAMETASON [Concomitant]
     Route: 048
     Dates: start: 20181012, end: 20181012
  14. CARBOPLATIN. [Suspect]
     Active Substance: CARBOPLATIN
     Indication: FALLOPIAN TUBE CANCER
  15. CARBOPLATIN. [Suspect]
     Active Substance: CARBOPLATIN
     Indication: PERITONEAL NEOPLASM
  16. APREPITANT. [Concomitant]
     Active Substance: APREPITANT
     Indication: PREMEDICATION
     Route: 065
     Dates: start: 20181011, end: 20181012
  17. KLEMASTIN [Concomitant]
     Route: 065
     Dates: start: 20181106, end: 20181106
  18. RANITIDIN [Concomitant]
     Active Substance: RANITIDINE HYDROCHLORIDE
     Route: 065
     Dates: start: 20181106, end: 20181106
  19. CANDESARTAN. [Concomitant]
     Active Substance: CANDESARTAN
     Indication: HYPERTENSION
     Route: 065
     Dates: start: 20180523
  20. APREPITANT. [Concomitant]
     Active Substance: APREPITANT
     Route: 065
     Dates: start: 20181106, end: 20181108
  21. RANITIDIN [Concomitant]
     Active Substance: RANITIDINE HYDROCHLORIDE
     Indication: PREMEDICATION
     Route: 065
     Dates: start: 20181011, end: 20181011
  22. BETAMETASON [Concomitant]
     Indication: PREMEDICATION
     Route: 048
     Dates: start: 20181011, end: 20181011
  23. KLEMASTIN [Concomitant]
     Indication: PREMEDICATION
     Route: 065
     Dates: start: 20181011, end: 20181011

REACTIONS (1)
  - Cytokine release syndrome [Not Recovered/Not Resolved]

NARRATIVE: CASE EVENT DATE: 20181020
